FAERS Safety Report 9186638 (Version 3)
Quarter: 2013Q3

REPORT INFORMATION
  Report Type: Spontaneous
  Country: US (occurrence: US)
  Receive Date: 20130325
  Receipt Date: 20130702
  Transmission Date: 20140515
  Serious: No
  Sender: FDA-Public Use
  Company Number: US-PFIZER INC-2013091850

PATIENT
  Age: 84 Year
  Sex: Female
  Weight: 65.3 kg

DRUGS (6)
  1. PREMARIN [Suspect]
     Indication: PAIN
     Dosage: 0.625 MG, AS NEEDED
     Route: 067
  2. PREMARIN [Suspect]
     Indication: CAESAREAN SECTION
     Dosage: UNK
  3. ALPHAGAN [Concomitant]
     Indication: EYE ALLERGY
     Dosage: 1 GTT (IN EACH EYE), 2X/DAY
     Route: 047
  4. LATANOPROST [Concomitant]
     Indication: EYE ALLERGY
     Dosage: 1 GTT (IN EACH EYE), 2X/DAY
     Route: 047
  5. PROAIR HFA [Concomitant]
     Indication: DYSPNOEA
     Dosage: 2 PUFFS EVERY 4/6 HOURS, AS NEEDED
  6. PREMARIN [Concomitant]
     Dosage: UNK

REACTIONS (2)
  - Product quality issue [Unknown]
  - Drug ineffective [Unknown]
